FAERS Safety Report 8465294 (Version 2)
Quarter: 2012Q4

REPORT INFORMATION
  Report Type: 
  Country: US (occurrence: US)
  Receive Date: 20120319
  Receipt Date: 20120829
  Transmission Date: 20130627
  Serious: Yes (Death, Hospitalization)
  Sender: FDA-Public Use
  Company Number: US-PFIZER INC-2012068171

PATIENT
  Age: 63 Year
  Sex: Female

DRUGS (4)
  1. XALKORI [Suspect]
     Indication: NON-SMALL CELL LUNG CANCER
     Dosage: 250 mg, 2x/day
     Route: 048
     Dates: start: 20111026, end: 20120202
  2. MORPHINE [Concomitant]
     Indication: PAIN
     Dosage: UNK
     Dates: start: 20110711
  3. MORPHINE [Concomitant]
     Indication: DYSPNOEA
  4. ONDANSETRON [Concomitant]
     Indication: NAUSEA
     Dosage: UNK
     Dates: start: 20111103

REACTIONS (4)
  - Disease progression [Fatal]
  - Non-small cell lung cancer [Fatal]
  - Dyspnoea [Recovered/Resolved with Sequelae]
  - Visual impairment [Recovered/Resolved]
